FAERS Safety Report 19050748 (Version 1)
Quarter: 2021Q1

REPORT INFORMATION
  Report Type: Spontaneous
  Country: CA (occurrence: CA)
  Receive Date: 20210324
  Receipt Date: 20210324
  Transmission Date: 20210420
  Serious: Yes (Hospitalization)
  Sender: FDA-Public Use
  Company Number: CA-NOVOPROD-795435

PATIENT
  Age: 17 Year
  Sex: Female

DRUGS (2)
  1. FIASP [Suspect]
     Active Substance: INSULIN ASPART
     Dosage: UNK
     Route: 058
  2. FIASP [Suspect]
     Active Substance: INSULIN ASPART
     Indication: PRODUCT USED FOR UNKNOWN INDICATION
     Dosage: UNK
     Route: 058

REACTIONS (1)
  - Diabetic ketoacidosis [Recovered/Resolved]
